FAERS Safety Report 8643156 (Version 2)
Quarter: 2013Q3

REPORT INFORMATION
  Report Type: Spontaneous
  Country: US (occurrence: US)
  Receive Date: 20120629
  Receipt Date: 20130816
  Transmission Date: 20140515
  Serious: Yes (Other)
  Sender: FDA-Public Use
  Company Number: US-BRISTOL-MYERS SQUIBB COMPANY-16700171

PATIENT
  Sex: Female

DRUGS (4)
  1. GLUCOVANCE [Suspect]
     Dosage: DOSE:5/500 MG,REDUCED:4 TABS-1 TAB PER DAY,3 GLUCOVANCE TABLETS EVERY DAY
     Dates: start: 1991
  2. MULTIVITAMIN [Concomitant]
     Dosage: CHEWABLE ONCE A DAY
  3. VITAMIN B12 [Concomitant]
  4. VITAMIN D [Concomitant]

REACTIONS (11)
  - Nausea [Unknown]
  - Abdominal pain upper [Unknown]
  - Flatulence [Unknown]
  - Eye pruritus [Unknown]
  - Hepatomegaly [Unknown]
  - Cystitis noninfective [Unknown]
  - Bladder disorder [Unknown]
  - Ulcer [Unknown]
  - Calculus urinary [Unknown]
  - Blood glucose increased [Unknown]
  - Product taste abnormal [Unknown]
